FAERS Safety Report 5633919-4 (Version None)
Quarter: 2008Q1

REPORT INFORMATION
  Report Type: 
  Country: None (occurrence: None)
  Receive Date: 20080221
  Receipt Date: 20080215
  Transmission Date: 20080703
  Serious: No
  Sender: FDA-Public Use
  Company Number: US-BOEHRINGER INGELHEIM GMBH, GERMANY-2007-BP-06766BP

PATIENT
  Age: 73 Year
  Sex: Male

DRUGS (5)
  1. FLOMAX [Suspect]
     Indication: BENIGN PROSTATIC HYPERPLASIA
     Route: 048
     Dates: start: 20000101
  2. AVODART [Suspect]
     Indication: BENIGN PROSTATIC HYPERPLASIA
     Dates: start: 20061201
  3. AVODART [Suspect]
     Dates: start: 20071201, end: 20080101
  4. ASPIRIN [Suspect]
     Indication: BLADDER DISORDER
     Route: 048
     Dates: start: 20071201
  5. VITAMIN B-12 [Concomitant]

REACTIONS (6)
  - BLOOD PRESSURE INCREASED [None]
  - DEPRESSION [None]
  - DRUG INEFFECTIVE [None]
  - DYSPHAGIA [None]
  - MUSCLE ATROPHY [None]
  - URINE FLOW DECREASED [None]
